FAERS Safety Report 6387335-0 (Version None)
Quarter: 2009Q3

REPORT INFORMATION
  Report Type: 
  Country: None (occurrence: None)
  Receive Date: 20090930
  Receipt Date: 20090914
  Transmission Date: 20100115
  Serious: Yes (Hospitalization)
  Sender: FDA-Public Use
  Company Number: 2009AL002255

PATIENT
  Age: 72 Year
  Sex: Male

DRUGS (31)
  1. DIGOXIN [Suspect]
     Dosage: 0.125MG, DAILY, PO
     Route: 048
     Dates: start: 20070101, end: 20080401
  2. DIGOXIN [Suspect]
     Dosage: 0.25MG, DAILY, PO
     Route: 048
     Dates: start: 20080117, end: 20080120
  3. SYNTHROID [Concomitant]
  4. PREDNISONE [Concomitant]
  5. COUMADIN [Concomitant]
  6. METOPROLOL [Concomitant]
  7. OXYCODONE [Concomitant]
  8. FLOMAX [Concomitant]
  9. CARDIZEM [Concomitant]
  10. PRILOSEC [Concomitant]
  11. CAPSAICIN [Concomitant]
  12. FOSAMAX [Concomitant]
  13. DOCUSATE [Concomitant]
  14. VERAPAMIL [Concomitant]
  15. ALBUTEROL [Concomitant]
  16. SENNA LAXATIVE [Concomitant]
  17. LORTAB [Concomitant]
  18. LOVASTATIN [Concomitant]
  19. TAMSULOSIN [Concomitant]
  20. IRON [Concomitant]
  21. SIMVASTATIN [Concomitant]
  22. IMMULOSIN [Concomitant]
  23. ALLOPURINOL [Concomitant]
  24. ACETAMINOPHEN [Concomitant]
  25. IPRATROPIUM [Concomitant]
  26. LEVALBUTEROL HCL [Concomitant]
  27. LEVOTHYROXINE [Concomitant]
  28. MOXIFLOXAIN [Concomitant]
  29. OMEPRAZOLE [Concomitant]
  30. PREDNISONE [Concomitant]
  31. WARFARIN SODIUM [Concomitant]

REACTIONS (13)
  - ANGINA PECTORIS [None]
  - ATRIAL FIBRILLATION [None]
  - CARDIAC FAILURE CONGESTIVE [None]
  - CONDITION AGGRAVATED [None]
  - DEEP VEIN THROMBOSIS [None]
  - DYSPNOEA [None]
  - ECONOMIC PROBLEM [None]
  - HEART RATE INCREASED [None]
  - HYPOTENSION [None]
  - INJURY [None]
  - MEDICAL DEVICE DISCOMFORT [None]
  - OSTEONECROSIS [None]
  - PATHOLOGICAL FRACTURE [None]
